FAERS Safety Report 8544318-X (Version None)
Quarter: 2012Q3

REPORT INFORMATION
  Report Type: 
  Country: None (occurrence: None)
  Receive Date: 20120727
  Receipt Date: 20120723
  Transmission Date: 20120928
  Serious: No
  Sender: FDA-Public Use
  Company Number: US-PFIZER INC-2012138342

PATIENT

DRUGS (3)
  1. COUMADIN [Concomitant]
     Dosage: UNK
  2. MEDROL [Concomitant]
     Dosage: UNK
  3. ZYVOX [Suspect]
     Indication: ENTEROCOCCAL INFECTION
     Dosage: UNK
     Route: 048
     Dates: start: 20120605, end: 20120607

REACTIONS (2)
  - HEADACHE [None]
  - VISION BLURRED [None]
